FAERS Safety Report 18201814 (Version 1)
Quarter: 2020Q3

REPORT INFORMATION
  Report Type: Spontaneous
  Country: US (occurrence: US)
  Receive Date: 20200826
  Receipt Date: 20200826
  Transmission Date: 20201103
  Serious: No
  Sender: FDA-Public Use
  Company Number: None

PATIENT
  Sex: Female
  Weight: 58.5 kg

DRUGS (3)
  1. BIRTH CONTROL [Concomitant]
     Active Substance: UNSPECIFIED INGREDIENT
  2. MONTELUKAST 10MG TABLETS [Suspect]
     Active Substance: MONTELUKAST\MONTELUKAST SODIUM
     Indication: MULTIPLE ALLERGIES
  3. SPIRONOLACTONE. [Concomitant]
     Active Substance: SPIRONOLACTONE

REACTIONS (14)
  - Anxiety [None]
  - Nasal congestion [None]
  - Feeling abnormal [None]
  - Memory impairment [None]
  - Mood swings [None]
  - Depressed mood [None]
  - Anger [None]
  - Apathy [None]
  - Hypophagia [None]
  - Disturbance in attention [None]
  - Nausea [None]
  - Paranoia [None]
  - Crying [None]
  - Irritability [None]
